FAERS Safety Report 4589479-2 (Version None)
Quarter: 2005Q1

REPORT INFORMATION
  Report Type: 
  Country: None (occurrence: None)
  Receive Date: 20050216
  Receipt Date: 20050209
  Transmission Date: 20050727
  Serious: Yes (Life-Threatening, Hospitalization, Other)
  Sender: FDA-Public Use
  Company Number: HQWYE199509FEB05

PATIENT
  Sex: Male

DRUGS (1)
  1. CEPHANOL (CEFIXIME, TABLET) [Suspect]
     Indication: NASOPHARYNGITIS
     Dosage: ORAL APPROXIMATELY ^5 DOSES^
     Route: 048
     Dates: start: 20041201, end: 20041201

REACTIONS (4)
  - ASCITES [None]
  - CIRCULATORY COLLAPSE [None]
  - GENERAL PHYSICAL HEALTH DETERIORATION [None]
  - INTESTINAL HYPOMOTILITY [None]
